FAERS Safety Report 25037254 (Version 1)
Quarter: 2025Q1

REPORT INFORMATION
  Report Type: Report from Study
  Country: US (occurrence: US)
  Receive Date: 20250304
  Receipt Date: 20250304
  Transmission Date: 20250408
  Serious: Yes (Other)
  Sender: ACADIA PHARMACEUTICALS
  Company Number: US-ACADIA PHARMACEUTICALS INC.-ACA-2025-PIM-001858

PATIENT
  Sex: Male

DRUGS (10)
  1. NUPLAZID [Suspect]
     Active Substance: PIMAVANSERIN TARTRATE
     Indication: Psychotic disorder
     Dosage: 34 MILLIGRAM, QD
     Route: 048
     Dates: start: 20241228
  2. NUPLAZID [Suspect]
     Active Substance: PIMAVANSERIN TARTRATE
     Indication: Hallucination
  3. AMANTADINE [Concomitant]
     Active Substance: AMANTADINE
  4. DONEPEZIL [Concomitant]
     Active Substance: DONEPEZIL
  5. DROXIDOPA [Concomitant]
     Active Substance: DROXIDOPA
  6. FLUDROCORTISONE [Concomitant]
     Active Substance: FLUDROCORTISONE
  7. GABAPENTIN [Concomitant]
     Active Substance: GABAPENTIN
  8. OXYBUTYNIN [Concomitant]
     Active Substance: OXYBUTYNIN
  9. TAMSULOSIN [Concomitant]
     Active Substance: TAMSULOSIN
  10. TESTOSTERONE [Concomitant]
     Active Substance: TESTOSTERONE

REACTIONS (3)
  - Hallucination [Unknown]
  - Constipation [Unknown]
  - Therapy interrupted [Unknown]
